FAERS Safety Report 10409543 (Version 2)
Quarter: 2014Q4

REPORT INFORMATION
  Report Type: Spontaneous
  Country: US (occurrence: US)
  Receive Date: 20140826
  Receipt Date: 20141009
  Transmission Date: 20150528
  Serious: Yes (Death, Hospitalization, Other)
  Sender: FDA-Public Use
  Company Number: US-MERCK-1408USA014274

PATIENT
  Sex: Male
  Weight: 84.8 kg

DRUGS (4)
  1. JANUVIA [Suspect]
     Active Substance: SITAGLIPTIN PHOSPHATE
     Indication: TYPE 2 DIABETES MELLITUS
     Dosage: 100 MG, QD
     Route: 048
     Dates: start: 20101217, end: 20110525
  2. VICTOZA [Suspect]
     Active Substance: LIRAGLUTIDE
     Indication: TYPE 2 DIABETES MELLITUS
     Dosage: 0.5 MG DAILY FOR FIRST WEEK THEN 1/2 MG DAILY
     Dates: start: 20130115, end: 20130206
  3. JANUVIA [Suspect]
     Active Substance: SITAGLIPTIN PHOSPHATE
     Dosage: 100 MG, QD
     Route: 048
     Dates: start: 20121022, end: 20121126
  4. BYETTA [Suspect]
     Active Substance: EXENATIDE
     Indication: TYPE 2 DIABETES MELLITUS
     Dosage: 5 MCG, QD
     Dates: start: 20080604, end: 20091114

REACTIONS (12)
  - Surgery [Unknown]
  - Bladder cancer [Unknown]
  - Cardiac pacemaker insertion [Unknown]
  - Benign tumour excision [Unknown]
  - Hypertension [Unknown]
  - Adenocarcinoma pancreas [Unknown]
  - Hepatitis [Unknown]
  - Death [Fatal]
  - Explorative laparotomy [Unknown]
  - Colon cancer [Unknown]
  - Bile duct stent insertion [Unknown]
  - Hypokalaemia [Unknown]

NARRATIVE: CASE EVENT DATE: 2012
